FAERS Safety Report 8596558-1 (Version None)
Quarter: 2012Q3

REPORT INFORMATION
  Report Type: 
  Country: None (occurrence: None)
  Receive Date: 20120815
  Receipt Date: 20120706
  Transmission Date: 20120928
  Serious: Yes (Hospitalization)
  Sender: FDA-Public Use
  Company Number: DE-ABBOTT-12P-062-0954930-00

PATIENT
  Sex: Female

DRUGS (3)
  1. TAMOXIFEN CITRATE [Concomitant]
     Indication: BREAST CANCER
     Dosage: PRIOR USE: YES; TOLERATED: YES
     Route: 048
     Dates: start: 20110501
  2. LEKOVIT CA [Concomitant]
     Indication: OSTEOPOROSIS PROPHYLAXIS
     Dosage: PRIOR USE: YES; TOLERATED: YES
     Route: 048
  3. LEUPROLIDE ACETATE [Suspect]
     Indication: BREAST CANCER
     Dosage: 1 IN 3 M, PRIOR USE: YES; TOLERATED: YES
     Route: 058
     Dates: start: 20110501

REACTIONS (1)
  - BASEDOW'S DISEASE [None]
